FAERS Safety Report 5628722-5 (Version None)
Quarter: 2008Q1

REPORT INFORMATION
  Report Type: 
  Country: None (occurrence: None)
  Receive Date: 20080215
  Receipt Date: 20080204
  Transmission Date: 20080703
  Serious: Yes (Other)
  Sender: FDA-Public Use
  Company Number: US-PFIZER INC-2008012232

PATIENT
  Sex: Male
  Weight: 79.4 kg

DRUGS (3)
  1. CHANTIX [Suspect]
     Indication: SMOKING CESSATION THERAPY
  2. VALIUM [Concomitant]
  3. LAMICTAL [Concomitant]
     Indication: BIPOLAR DISORDER

REACTIONS (2)
  - ABNORMAL DREAMS [None]
  - DIVERTICULITIS [None]
